FAERS Safety Report 4322496-6 (Version None)
Quarter: 2004Q1

REPORT INFORMATION
  Report Type: 
  Country: None (occurrence: None)
  Receive Date: 20040323
  Receipt Date: 20040323
  Transmission Date: 20041129
  Serious: Yes (Death)
  Sender: FDA-Public Use
  Company Number: None

PATIENT
  Age: 43 Year
  Sex: Female
  Weight: 63.5036 kg

DRUGS (1)
  1. PROZAC [Suspect]
     Dosage: 100 MG? DAILY ORAL
     Route: 048
     Dates: start: 19920201, end: 19930301

REACTIONS (3)
  - COMPLETED SUICIDE [None]
  - FEELING ABNORMAL [None]
  - LOSS OF EMPLOYMENT [None]
